FAERS Safety Report 4727583-6 (Version None)
Quarter: 2005Q3

REPORT INFORMATION
  Report Type: 
  Country: None (occurrence: None)
  Receive Date: 20050727
  Receipt Date: 20050727
  Transmission Date: 20060218
  Serious: Yes (Hospitalization)
  Sender: FDA-Public Use
  Company Number: None

PATIENT
  Age: 62 Year
  Sex: Male

DRUGS (17)
  1. IRBESARTAN [Suspect]
     Dosage: 150MG  PO  QD
     Route: 048
     Dates: start: 20050425, end: 20050602
  2. LISINOPRIL [Suspect]
     Dosage: 40MG  PO   BID
     Route: 048
     Dates: start: 20040929, end: 20050623
  3. GLYBURIDE [Concomitant]
  4. LISINOPRIL [Concomitant]
  5. SIMVASTATIN [Concomitant]
  6. TERAZOSIN HCL [Concomitant]
  7. ASPIRIN [Concomitant]
  8. FOLIC ACID [Concomitant]
  9. FUROSEMIDE [Concomitant]
  10. CILOSTAZOL [Concomitant]
  11. GABAPENTIN [Concomitant]
  12. NITROGLYCERIN [Concomitant]
  13. IRBESARTAN [Concomitant]
  14. METOPROLOL TARTRATE [Concomitant]
  15. DARBEPOETIN ALFA [Concomitant]
  16. INSULIN NOVOLIN 70/30 -NPH/REG- [Concomitant]
  17. NOVONAPHAZOLIN 0.025/PHENIRAMIN 0.3% OPH SLN [Concomitant]

REACTIONS (1)
  - BLOOD CREATININE INCREASED [None]
